FAERS Safety Report 5920275-7 (Version None)
Quarter: 2008Q4

REPORT INFORMATION
  Report Type: 
  Country: None (occurrence: None)
  Receive Date: 20081016
  Receipt Date: 20081008
  Transmission Date: 20090506
  Serious: Yes (Other)
  Sender: FDA-Public Use
  Company Number: US-ASTRAZENECA-2008UW21929

PATIENT
  Age: 52 Year
  Sex: Male
  Weight: 117.9 kg

DRUGS (6)
  1. ZESTORETIC [Suspect]
     Route: 048
  2. LORCET-HD [Concomitant]
  3. IBUPROFEN TABLETS [Concomitant]
  4. CELEBREX [Concomitant]
  5. LIPITOR [Concomitant]
  6. TOPROL-XL [Concomitant]

REACTIONS (7)
  - ACTIVITIES OF DAILY LIVING IMPAIRED [None]
  - ARTHRALGIA [None]
  - BACK PAIN [None]
  - HYPOAESTHESIA [None]
  - INTERVERTEBRAL DISC DEGENERATION [None]
  - MUSCLE SPASMS [None]
  - PAIN IN EXTREMITY [None]
